FAERS Safety Report 21279403 (Version 2)
Quarter: 2022Q3

REPORT INFORMATION
  Report Type: Spontaneous
  Country: JP (occurrence: JP)
  Receive Date: 20220901
  Receipt Date: 20220905
  Transmission Date: 20221027
  Serious: Yes (Death, Other)
  Sender: FDA-Public Use
  Company Number: JP-SYMBIO-202200188

PATIENT
  Age: 77 Year
  Sex: Male
  Weight: 45 kg

DRUGS (21)
  1. BENDAMUSTINE HYDROCHLORIDE [Suspect]
     Active Substance: BENDAMUSTINE HYDROCHLORIDE
     Indication: Follicular lymphoma
     Dosage: (ONCE DAILY) (1ST CYCLE)
     Route: 041
     Dates: start: 20190516, end: 20190517
  2. BENDAMUSTINE HYDROCHLORIDE [Suspect]
     Active Substance: BENDAMUSTINE HYDROCHLORIDE
     Dosage: (ONCE DAILY) (2ND CYCLE)
     Route: 041
     Dates: start: 20190613, end: 20190614
  3. BENDAMUSTINE HYDROCHLORIDE [Suspect]
     Active Substance: BENDAMUSTINE HYDROCHLORIDE
     Dosage: (ONCE DAILY) (3RD CYCLE)
     Route: 041
     Dates: start: 20190711, end: 20190712
  4. BENDAMUSTINE HYDROCHLORIDE [Suspect]
     Active Substance: BENDAMUSTINE HYDROCHLORIDE
     Dosage: (ONCE DAILY) (4TH CYCLE)
     Route: 041
     Dates: start: 20190808, end: 20190809
  5. BENDAMUSTINE HYDROCHLORIDE [Suspect]
     Active Substance: BENDAMUSTINE HYDROCHLORIDE
     Dosage: (ONCE DAILY) (5TH CYCLE)
     Route: 041
     Dates: start: 20190905, end: 20190906
  6. BENDAMUSTINE HYDROCHLORIDE [Suspect]
     Active Substance: BENDAMUSTINE HYDROCHLORIDE
     Dosage: (ONCE DAILY) (6TH CYCLE)
     Route: 041
     Dates: start: 20191007, end: 20191008
  7. GAZYVA [Suspect]
     Active Substance: OBINUTUZUMAB
     Indication: Follicular lymphoma
     Dosage: 1000 MILLIGRAM DAILY; (1ST CYCLE)
     Route: 041
     Dates: start: 20190516, end: 20190516
  8. GAZYVA [Suspect]
     Active Substance: OBINUTUZUMAB
     Dosage: 1000 MILLIGRAM DAILY; (2ND CYCLE)
     Route: 041
     Dates: start: 20190613, end: 20190613
  9. GAZYVA [Suspect]
     Active Substance: OBINUTUZUMAB
     Dosage: 1000 MILLIGRAM DAILY; (3RD CYCLE)
     Route: 041
     Dates: start: 20190711, end: 20190711
  10. GAZYVA [Suspect]
     Active Substance: OBINUTUZUMAB
     Dosage: 1000 MILLIGRAM DAILY; (4TH CYCLE)
     Route: 041
     Dates: start: 20190808, end: 20190808
  11. GAZYVA [Suspect]
     Active Substance: OBINUTUZUMAB
     Dosage: 1000 MILLIGRAM DAILY; (5TH CYCLE)
     Route: 041
     Dates: start: 20190905, end: 20190905
  12. GAZYVA [Suspect]
     Active Substance: OBINUTUZUMAB
     Dosage: 1000 MILLIGRAM DAILY; (6TH CYCLE)
     Route: 041
     Dates: start: 20191007, end: 20191007
  13. GAZYVA [Suspect]
     Active Substance: OBINUTUZUMAB
     Route: 041
     Dates: start: 20191128, end: 20200709
  14. RITUXAN [Concomitant]
     Active Substance: RITUXIMAB
     Indication: Follicular lymphoma
     Route: 041
     Dates: start: 20220201
  15. SULFAMETHOXAZOLE\TRIMETHOPRIM [Concomitant]
     Active Substance: SULFAMETHOXAZOLE\TRIMETHOPRIM
     Indication: Prophylaxis
     Dosage: 1 DOSAGE FORMS DAILY; (MORNING)
     Route: 048
     Dates: start: 20170223, end: 20220423
  16. REBAMIPIDE [Concomitant]
     Active Substance: REBAMIPIDE
     Indication: Abdominal discomfort
     Dosage: 300 MILLIGRAM DAILY; (AFTER EACH MEAL)
     Route: 048
     Dates: start: 20170223, end: 20220423
  17. FEBUXOSTAT [Concomitant]
     Active Substance: FEBUXOSTAT
     Indication: Hyperuricaemia
     Dosage: 20 MILLIGRAM DAILY;  (MORNING)
     Route: 048
     Dates: start: 20170223, end: 20220423
  18. PANTETHINE [Concomitant]
     Active Substance: PANTETHINE
     Indication: Constipation
     Dosage: 300 MILLIGRAM DAILY;  (AFTER EACH MEAL)
     Route: 048
     Dates: start: 20170224, end: 20220423
  19. MAGNESIUM OXIDE [Concomitant]
     Active Substance: MAGNESIUM OXIDE
     Indication: Constipation
     Dosage: 990 MILLIGRAM DAILY; (AFTER EACH MEAL)
     Route: 048
     Dates: start: 20170224, end: 20220423
  20. PARSACLISIB [Concomitant]
     Active Substance: PARSACLISIB
     Indication: Follicular lymphoma
     Route: 065
     Dates: start: 20200930
  21. REVLIMID [Concomitant]
     Active Substance: LENALIDOMIDE
     Indication: Follicular lymphoma
     Route: 065
     Dates: start: 20220201

REACTIONS (3)
  - COVID-19 pneumonia [Fatal]
  - SARS-CoV-2 test positive [Fatal]
  - Malignant neoplasm progression [Unknown]

NARRATIVE: CASE EVENT DATE: 20220407
